FAERS Safety Report 9398533 (Version 1)
Quarter: 2013Q3

REPORT INFORMATION
  Report Type: Spontaneous
  Country: DE (occurrence: DE)
  Receive Date: 20130712
  Receipt Date: 20130712
  Transmission Date: 20140515
  Serious: Yes (Hospitalization)
  Sender: FDA-Public Use
  Company Number: DE-IAC JAPAN XML-DEU-2013-0011967

PATIENT
  Sex: Female

DRUGS (1)
  1. NORSPAN 10 UG/H [Suspect]
     Indication: CANCER PAIN
     Dosage: 10 MCG, Q1H
     Route: 062
     Dates: start: 201306, end: 201306

REACTIONS (4)
  - General physical health deterioration [Unknown]
  - Trance [Unknown]
  - Decreased appetite [Unknown]
  - Fatigue [Unknown]
